FAERS Safety Report 7438502-6 (Version None)
Quarter: 2011Q2

REPORT INFORMATION
  Report Type: 
  Country: None (occurrence: None)
  Receive Date: 20110426
  Receipt Date: 20110419
  Transmission Date: 20111010
  Serious: Yes (Death, Life-Threatening, Hospitalization)
  Sender: FDA-Public Use
  Company Number: GB-NAPPMUNDI-GBR-2011-0007987

PATIENT
  Age: 65 Year
  Sex: Male

DRUGS (11)
  1. DALTEPARIN [Suspect]
     Indication: LUNG NEOPLASM MALIGNANT
     Dosage: UNK
     Route: 065
     Dates: start: 20101220, end: 20110225
  2. APREPITANT [Suspect]
     Indication: PRODUCT USED FOR UNKNOWN INDICATION
     Dosage: 4 UNK, UNK
     Route: 042
     Dates: start: 20110225, end: 20110225
  3. TAZOCIN [Concomitant]
     Indication: C-REACTIVE PROTEIN INCREASED
     Route: 065
  4. DIAMORPHINE [Concomitant]
     Route: 042
  5. ONDANSETRON [Suspect]
     Dosage: 8 MG, UNK
     Route: 048
  6. PEMETREXED [Suspect]
     Indication: PRODUCT USED FOR UNKNOWN INDICATION
     Dosage: UNK
     Route: 042
     Dates: start: 20101221, end: 20110225
  7. CISPLATIN [Suspect]
     Indication: PRODUCT USED FOR UNKNOWN INDICATION
     Dosage: UNK
     Route: 042
     Dates: start: 20101221, end: 20110225
  8. CYCLIZINE [Concomitant]
  9. MST CONTINUS TABLETS 30 MG [Suspect]
     Indication: PRODUCT USED FOR UNKNOWN INDICATION
     Dosage: 30 MG, UNK
     Route: 048
  10. DEXAMETHASONE [Suspect]
     Indication: PRODUCT USED FOR UNKNOWN INDICATION
     Dosage: 4 MG, UNK
     Route: 048
     Dates: start: 20110225, end: 20110225
  11. ACETAMINOPHEN [Concomitant]
     Route: 048

REACTIONS (6)
  - LUNG NEOPLASM MALIGNANT [None]
  - PERITONITIS [None]
  - LARGE INTESTINE PERFORATION [None]
  - ABDOMINAL PAIN [None]
  - NAUSEA [None]
  - CONSTIPATION [None]
